FAERS Safety Report 8816310 (Version 1)
Quarter: 2012Q4

REPORT INFORMATION
  Report Type: Spontaneous
  Country: US (occurrence: None)
  Receive Date: 20120928
  Receipt Date: 20120928
  Transmission Date: 20130627
  Serious: No
  Sender: FDA-Public Use
  Company Number: None

PATIENT
  Age: 56 Year
  Sex: Male
  Weight: 79.1 kg

DRUGS (2)
  1. PEGINTERFERON [Suspect]
     Indication: HEPATITIS C
     Dosage: 180 MCG  QWEEK  SQ
     Route: 058
     Dates: start: 20120405
  2. BOCEPREVIR [Suspect]
     Indication: HEPATITIS C
     Dosage: 800 MG  TID  PO
     Route: 048
     Dates: start: 20120503

REACTIONS (4)
  - Neutropenia [None]
  - Anaemia [None]
  - White blood cell count decreased [None]
  - Platelet count decreased [None]
